FAERS Safety Report 10503590 (Version 2)
Quarter: 2014Q4

REPORT INFORMATION
  Report Type: Spontaneous
  Country: GR (occurrence: GR)
  Receive Date: 20141008
  Receipt Date: 20141008
  Transmission Date: 20150528
  Serious: Yes (Death)
  Sender: FDA-Public Use
  Company Number: GR-009507513-1408GRC001654

PATIENT
  Sex: Male

DRUGS (1)
  1. PEGINTRON [Suspect]
     Active Substance: PEGINTERFERON ALFA-2B
     Indication: HEPATITIS C
     Dosage: UNK
     Dates: start: 201404, end: 201407

REACTIONS (5)
  - Facial paresis [Unknown]
  - Influenza like illness [Recovering/Resolving]
  - Death [Fatal]
  - Dysphagia [Unknown]
  - Vocal cord paresis [Unknown]

NARRATIVE: CASE EVENT DATE: 2014
